FAERS Safety Report 9430938 (Version 1)
Quarter: 2013Q3

REPORT INFORMATION
  Report Type: Spontaneous
  Country: US (occurrence: US)
  Receive Date: 20130730
  Receipt Date: 20130730
  Transmission Date: 20140515
  Serious: No
  Sender: FDA-Public Use
  Company Number: US-ABBOTT-13P-163-1106453-00

PATIENT
  Age: 53 Year
  Sex: Female
  Weight: 90.8 kg

DRUGS (4)
  1. NIASPAN (COATED) [Suspect]
     Indication: BLOOD CHOLESTEROL INCREASED
     Dates: start: 20130613
  2. SEROQUEL [Concomitant]
     Indication: DEPRESSION
  3. DEPAKOTE [Concomitant]
     Indication: DEPRESSION
  4. PRILOSEC [Concomitant]
     Indication: ULCER

REACTIONS (4)
  - Hyperhidrosis [Unknown]
  - Nausea [Unknown]
  - Diarrhoea [Unknown]
  - Pruritus [Unknown]
